FAERS Safety Report 6241550-5 (Version None)
Quarter: 2009Q2

REPORT INFORMATION
  Report Type: 
  Country: None (occurrence: None)
  Receive Date: 20090623
  Receipt Date: 20040121
  Transmission Date: 20091009
  Serious: Yes (Life-Threatening, Hospitalization)
  Sender: FDA-Public Use
  Company Number: IL-ROCHE-356068

PATIENT
  Sex: Female
  Weight: 88.8 kg

DRUGS (74)
  1. MYCOPHENOLATE MOFETIL [Suspect]
     Route: 048
     Dates: start: 20040110, end: 20040218
  2. MYCOPHENOLATE MOFETIL [Suspect]
     Route: 048
     Dates: start: 20040224
  3. MYCOPHENOLATE MOFETIL [Suspect]
     Route: 048
     Dates: start: 20040315, end: 20040322
  4. MYCOPHENOLATE MOFETIL [Suspect]
     Route: 048
     Dates: start: 20040411
  5. MYCOPHENOLATE MOFETIL [Suspect]
     Route: 048
     Dates: start: 20040420
  6. MYCOPHENOLATE MOFETIL [Suspect]
     Route: 048
     Dates: start: 20040423
  7. MYCOPHENOLATE MOFETIL [Suspect]
     Route: 048
     Dates: start: 20040531
  8. CYCLOSPORINE [Suspect]
     Dosage: DRUG NAME: CYCLOSPORINE
     Route: 048
     Dates: start: 20040110
  9. CYCLOSPORINE [Suspect]
     Route: 048
     Dates: start: 20040123, end: 20040218
  10. CYCLOSPORINE [Suspect]
     Route: 048
     Dates: start: 20040224, end: 20040423
  11. CYCLOSPORINE [Suspect]
     Dosage: DRUG NAME: CYCLOSPORINE
     Route: 048
     Dates: start: 20040116, end: 20040122
  12. TACROLIMUS [Suspect]
     Route: 048
     Dates: start: 20040423, end: 20040627
  13. TACROLIMUS [Suspect]
     Route: 048
     Dates: start: 20040628, end: 20041229
  14. TACROLIMUS [Suspect]
     Route: 048
     Dates: start: 20041230
  15. PREDNISONE [Suspect]
     Route: 048
     Dates: start: 20040112, end: 20040114
  16. PREDNISONE [Suspect]
     Route: 048
     Dates: start: 20040118, end: 20040119
  17. PREDNISONE [Suspect]
     Route: 048
     Dates: start: 20040123, end: 20040218
  18. PREDNISONE [Suspect]
     Route: 048
     Dates: start: 20040225, end: 20040423
  19. PREDNISONE [Suspect]
     Route: 048
     Dates: start: 20040426
  20. HEPARIN [Suspect]
     Indication: DRUG USE FOR UNKNOWN INDICATION
     Dosage: ROUTE: INTRAVENOUS
     Route: 050
     Dates: start: 20040110
  21. HEPARIN [Suspect]
     Dosage: ROUTE: INTRAVENOUS
     Route: 050
     Dates: start: 20040111, end: 20040115
  22. HEPARIN [Suspect]
     Dosage: ROUTE: SUBCUTANEOUS
     Route: 050
     Dates: start: 20040127, end: 20040515
  23. HYDROCORTISONE [Suspect]
     Route: 042
     Dates: start: 20040423, end: 20040426
  24. SOLU-MEDROL [Suspect]
     Route: 042
     Dates: start: 20040110
  25. SOLU-MEDROL [Suspect]
     Route: 042
     Dates: start: 20040111
  26. SOLU-MEDROL [Suspect]
     Route: 042
     Dates: start: 20040113
  27. SOLU-MEDROL [Suspect]
     Route: 042
     Dates: start: 20040114, end: 20040118
  28. SOLU-MEDROL [Suspect]
     Route: 042
     Dates: start: 20040119
  29. SOLU-MEDROL [Suspect]
     Route: 042
     Dates: start: 20040121
  30. SOLU-MEDROL [Suspect]
     Route: 042
     Dates: start: 20040127
  31. SOLU-MEDROL [Suspect]
     Route: 042
     Dates: start: 20040129, end: 20040130
  32. SOLU-MEDROL [Suspect]
     Route: 042
     Dates: start: 20040218
  33. SOLU-MEDROL [Suspect]
     Route: 042
     Dates: start: 20040218, end: 20040225
  34. SOLU-MEDROL [Suspect]
     Route: 042
     Dates: start: 20040422
  35. SOLU-MEDROL [Suspect]
     Route: 042
     Dates: start: 20040425, end: 20040427
  36. SOLU-MEDROL [Suspect]
     Route: 042
     Dates: start: 20040504, end: 20040506
  37. COTRIMOXAZOLE [Concomitant]
     Route: 048
     Dates: start: 20040115, end: 20040218
  38. COTRIMOXAZOLE [Concomitant]
     Route: 048
     Dates: start: 20040315
  39. COTRIMOXAZOLE [Concomitant]
     Route: 048
     Dates: start: 20040423
  40. EPOGEN [Concomitant]
     Dosage: ROUTE: INTRAVENOUS
     Route: 050
     Dates: start: 20040119
  41. EPOGEN [Concomitant]
     Dosage: ROUTE: SUBCUTANEOUS
     Route: 050
     Dates: start: 20040215
  42. EPOGEN [Concomitant]
     Dosage: ROUTE: INTRAVENOUS
     Route: 050
     Dates: start: 20040315
  43. EPOGEN [Concomitant]
     Dosage: ROUE: INTRAVENOUS
     Route: 050
     Dates: start: 20040408
  44. AMLODIPINE [Concomitant]
     Route: 048
     Dates: start: 20040120, end: 20040204
  45. AMLODIPINE [Concomitant]
     Route: 048
     Dates: start: 20040225, end: 20040423
  46. AMLODIPINE [Concomitant]
     Route: 048
     Dates: start: 20040726
  47. VALGANCICLOVIR HCL [Concomitant]
     Route: 048
  48. AMIODARONE [Concomitant]
     Route: 042
     Dates: start: 20040113, end: 20040115
  49. AMIODARONE [Concomitant]
     Route: 042
     Dates: start: 20040225, end: 20040226
  50. AMIODARONE [Concomitant]
     Route: 048
     Dates: start: 20040227, end: 20040422
  51. INSULIN [Concomitant]
     Dosage: UINTS = IU, FREQUENCY: PN ROUTE: INTRAVENOUS
     Route: 050
     Dates: start: 20040110, end: 20040121
  52. INSULIN [Concomitant]
     Dosage: ROUTE: SUBCUTANEOUS
     Route: 050
     Dates: start: 20040328
  53. GLIBENCLAMIDE [Concomitant]
     Dosage: DRUG NAME: GLIBETIC
     Route: 048
     Dates: start: 20040315, end: 20040423
  54. CEFEPIME [Concomitant]
     Route: 042
     Dates: start: 20040116, end: 20040118
  55. CEFEPIME [Concomitant]
     Route: 042
     Dates: start: 20040218, end: 20040223
  56. IMIPENEM [Concomitant]
     Route: 042
     Dates: start: 20040218, end: 20040310
  57. IMIPENEM [Concomitant]
     Route: 042
     Dates: start: 20040422, end: 20040428
  58. AMPICILLIN [Concomitant]
     Route: 042
     Dates: start: 20040218, end: 20040219
  59. CEFTRIAXON [Concomitant]
     Route: 042
     Dates: start: 20040114, end: 20040116
  60. CIPROFLOXACIN [Concomitant]
     Route: 042
     Dates: start: 20040119, end: 20040121
  61. CIPROFLOXACIN [Concomitant]
     Route: 048
     Dates: start: 20040122, end: 20040129
  62. CIPROFLOXACIN [Concomitant]
     Route: 048
     Dates: start: 20040325, end: 20040326
  63. FUROSEMIDE [Concomitant]
     Route: 048
     Dates: start: 20040628
  64. GANCICLOVIR [Concomitant]
     Route: 042
     Dates: start: 20040128, end: 20040215
  65. LEVOFLOXACIN [Concomitant]
     Route: 048
     Dates: start: 20040326, end: 20040422
  66. METRONIDAZOLE [Concomitant]
     Route: 042
     Dates: start: 20040223, end: 20040225
  67. METRONIDAZOLE [Concomitant]
     Route: 048
     Dates: start: 20040226, end: 20040312
  68. NIFEDIPINE [Concomitant]
     Route: 048
     Dates: start: 20040118, end: 20040121
  69. NIFEDIPINE [Concomitant]
     Route: 048
     Dates: start: 20040224, end: 20040312
  70. PROPRANOLOL HYDROCHLORIDE [Concomitant]
     Route: 048
     Dates: start: 20040423
  71. SIMVASTATIN [Concomitant]
     Route: 048
     Dates: start: 20040628
  72. VANCOMYCINE [Concomitant]
     Dates: start: 20040114
  73. VERAPAMIL [Concomitant]
     Route: 042
     Dates: start: 20040113
  74. VERAPAMIL [Concomitant]
     Route: 042
     Dates: start: 20040115, end: 20040422

REACTIONS (7)
  - BRONCHITIS [None]
  - DIARRHOEA [None]
  - HYPERGLYCAEMIA [None]
  - PERITONITIS [None]
  - PSEUDOMEMBRANOUS COLITIS [None]
  - SEPSIS [None]
  - SHOCK HAEMORRHAGIC [None]
